FAERS Safety Report 8001491-X (Version None)
Quarter: 2011Q4

REPORT INFORMATION
  Report Type: 
  Country: None (occurrence: None)
  Receive Date: 20111222
  Receipt Date: 20111215
  Transmission Date: 20120403
  Serious: Yes (Hospitalization, Other)
  Sender: FDA-Public Use
  Company Number: JP-JNJFOC-20111111881

PATIENT
  Age: 63 Year
  Sex: Male

DRUGS (2)
  1. TEICOPLANIN [Concomitant]
     Indication: BRONCHOPULMONARY ASPERGILLOSIS
     Route: 041
  2. ITRACONAZOLE [Suspect]
     Indication: BRONCHOPULMONARY ASPERGILLOSIS
     Route: 041
     Dates: start: 20110420, end: 20110513

REACTIONS (2)
  - PNEUMONIA [None]
  - PULMONARY ALVEOLAR HAEMORRHAGE [None]
